FAERS Safety Report 25191794 (Version 2)
Quarter: 2025Q2

REPORT INFORMATION
  Report Type: Spontaneous
  Country: IT (occurrence: IT)
  Receive Date: 20250414
  Receipt Date: 20250603
  Transmission Date: 20250717
  Serious: Yes (Death, Hospitalization)
  Sender: MYLAN
  Company Number: IT-CHEPLA-2025004037

PATIENT
  Age: 64 Year
  Sex: Male

DRUGS (11)
  1. DEXAMETHASONE [Suspect]
     Active Substance: DEXAMETHASONE
     Indication: Acute promyelocytic leukaemia
     Dosage: 20 MILLIGRAM, QD
  2. AMIODARONE [Suspect]
     Active Substance: AMIODARONE
     Indication: Atrial fibrillation
  3. TRETINOIN [Suspect]
     Active Substance: TRETINOIN
     Indication: Acute promyelocytic leukaemia
     Dosage: 45 MILLIGRAM/SQ. METER, QD
  4. HYDROXYUREA [Suspect]
     Active Substance: HYDROXYUREA
     Indication: Acute promyelocytic leukaemia
     Dosage: 60 MILLIGRAM/KILOGRAM, QD (HIGH-DOSE HYDROXYUREA (HU, 60 MG/KG/DAY))
  5. HYDROXYUREA [Suspect]
     Active Substance: HYDROXYUREA
     Dosage: 115 MILLIGRAM/KILOGRAM, QD (DAILY DOSE OF HYDROXYUREA WAS INCREASED TO 115 MG/KG/DAY)
  6. METHYLPREDNISOLONE [Suspect]
     Active Substance: METHYLPREDNISOLONE
     Indication: Prophylaxis
     Dosage: 0.5 MILLIGRAM/KILOGRAM, QD (METHYLPREDNISOLONE AT 0.5 MG/KG/DAY)
  7. CYTARABINE [Suspect]
     Active Substance: CYTARABINE
     Indication: Acute promyelocytic leukaemia
  8. SODIUM BICARBONATE [Concomitant]
     Active Substance: SODIUM BICARBONATE
     Indication: Urate nephropathy
  9. SODIUM BICARBONATE [Concomitant]
     Active Substance: SODIUM BICARBONATE
     Indication: Prophylaxis
  10. ALLOPURINOL [Concomitant]
     Active Substance: ALLOPURINOL
     Indication: Prophylaxis
  11. ALLOPURINOL [Concomitant]
     Active Substance: ALLOPURINOL
     Indication: Urate nephropathy

REACTIONS (1)
  - Drug ineffective [Fatal]
